FAERS Safety Report 23642316 (Version 1)
Quarter: 2024Q1

REPORT INFORMATION
  Report Type: Spontaneous
  Country: NO (occurrence: NO)
  Receive Date: 20240318
  Receipt Date: 20240318
  Transmission Date: 20240410
  Serious: Yes (Other)
  Sender: FDA-Public Use
  Company Number: None

PATIENT
  Age: 63 Year
  Sex: Female
  Weight: 68 kg

DRUGS (1)
  1. TRAMADOL [Suspect]
     Active Substance: TRAMADOL\TRAMADOL HYDROCHLORIDE
     Indication: Headache
     Dosage: SHE TOOK 2 TABLETS AND AFTER 4 HOURS SHE TOOK 1 TABLET., ACTAVIS
     Route: 048
     Dates: start: 20231231, end: 20240101

REACTIONS (6)
  - Immobile [Unknown]
  - Tremor [Unknown]
  - Nausea [Unknown]
  - Malaise [Unknown]
  - Vomiting [Recovered/Resolved]
  - Cold sweat [Unknown]

NARRATIVE: CASE EVENT DATE: 20231231
